FAERS Safety Report 24108552 (Version 2)
Quarter: 2024Q3

REPORT INFORMATION
  Report Type: Spontaneous
  Country: US (occurrence: US)
  Receive Date: 20240718
  Receipt Date: 20240725
  Transmission Date: 20241017
  Serious: No
  Sender: ABBVIE
  Company Number: US-ABBVIE-5839928

PATIENT
  Age: 37 Year
  Sex: Female
  Weight: 98.429 kg

DRUGS (3)
  1. SKYRIZI [Suspect]
     Active Substance: RISANKIZUMAB-RZAA
     Indication: Psoriatic arthropathy
     Dosage: FORM STRENGHT: 150 MILLIGRAM
     Route: 058
     Dates: start: 20231201
  2. METOPROLOL [Concomitant]
     Active Substance: METOPROLOL
     Indication: Hypertension
  3. LOSARTAN K/HCTZ [Concomitant]
     Indication: Hypertension

REACTIONS (4)
  - Injection site injury [Recovered/Resolved]
  - Injection site pain [Recovering/Resolving]
  - Product administration error [Recovered/Resolved]
  - Injection site haemorrhage [Recovered/Resolved]

NARRATIVE: CASE EVENT DATE: 20240709
